FAERS Safety Report 8212277-5 (Version None)
Quarter: 2012Q1

REPORT INFORMATION
  Report Type: 
  Country: None (occurrence: None)
  Receive Date: 20120315
  Receipt Date: 20120208
  Transmission Date: 20120608
  Serious: No
  Sender: FDA-Public Use
  Company Number: US-ROCHE-1047992

PATIENT
  Age: 8 Year
  Sex: Male
  Weight: 30.872 kg

DRUGS (1)
  1. TAMIFLU [Suspect]
     Indication: PROPHYLAXIS
     Dosage: 30X 2 MG ONCE A DAY
     Route: 048

REACTIONS (2)
  - ABDOMINAL PAIN [None]
  - ACCIDENTAL OVERDOSE [None]
